FAERS Safety Report 10257591 (Version 1)
Quarter: 2014Q2

REPORT INFORMATION
  Report Type: Spontaneous
  Country: FI (occurrence: None)
  Receive Date: 20140620
  Receipt Date: 20140620
  Transmission Date: 20141212
  Serious: Yes (Death, Hospitalization)
  Sender: FDA-Public Use
  Company Number: SYM-2014-22111

PATIENT
  Age: 85 Year
  Sex: Female

DRUGS (5)
  1. VENLAFAXINE HYDROCHLORIDE [Suspect]
     Indication: PHYSICAL ASSAULT
  2. NORDAZEPAM [Suspect]
     Indication: PHYSICAL ASSAULT
  3. TEMAZEPAM [Suspect]
     Indication: PHYSICAL ASSAULT
  4. CITALOPRAM [Suspect]
     Indication: PHYSICAL ASSAULT
  5. OXAZEPAM [Suspect]
     Indication: PHYSICAL ASSAULT

REACTIONS (6)
  - Pain [None]
  - Vomiting [None]
  - Loss of consciousness [None]
  - Coma [None]
  - Poisoning [None]
  - Cerebral ischaemia [None]
